FAERS Safety Report 10189292 (Version 2)
Quarter: 2014Q2

REPORT INFORMATION
  Report Type: Spontaneous
  Country: US (occurrence: US)
  Receive Date: 20140522
  Receipt Date: 20140522
  Transmission Date: 20141212
  Serious: No
  Sender: FDA-Public Use
  Company Number: US-PFIZER INC-2014002596

PATIENT
  Age: 50 Year
  Sex: 0

DRUGS (8)
  1. EFFEXOR XR [Suspect]
     Dosage: 150 MG, 1X/DAY
  2. LEVOTHYROXINE [Concomitant]
     Dosage: UNK
  3. NEXIUM [Concomitant]
     Dosage: 40 MG, 2X/DAY
  4. VENTOLIN [Concomitant]
     Dosage: UNK
  5. ADVAIR [Concomitant]
     Dosage: UNK
  6. FENTANYL [Concomitant]
     Dosage: UNK
     Route: 062
  7. VERAMYST [Concomitant]
     Dosage: UNK
  8. ZANAFLEX [Concomitant]
     Dosage: UNK

REACTIONS (1)
  - Drug withdrawal syndrome [Unknown]
